FAERS Safety Report 4349395-8 (Version None)
Quarter: 2004Q2

REPORT INFORMATION
  Report Type: 
  Country: None (occurrence: None)
  Receive Date: 20040428
  Receipt Date: 20040407
  Transmission Date: 20050107
  Serious: Yes (Hospitalization)
  Sender: FDA-Public Use
  Company Number: FR-GLAXOSMITHKLINE-B0329229A

PATIENT
  Age: 60 Year
  Sex: Male
  Weight: 76 kg

DRUGS (4)
  1. AUGMENTIN [Suspect]
     Route: 048
     Dates: start: 20040224, end: 20040302
  2. CISPLATIN [Suspect]
     Dosage: 29MG PER DAY
     Route: 042
     Dates: start: 20040209
  3. OFLOCET [Suspect]
     Dosage: 400MG PER DAY
     Route: 048
     Dates: start: 20040224, end: 20040302
  4. FLUOROURACIL [Concomitant]

REACTIONS (4)
  - BRONCHITIS [None]
  - LEUKOPENIA [None]
  - NEUTROPENIA [None]
  - PYREXIA [None]
